FAERS Safety Report 5380108-7 (Version None)
Quarter: 2007Q3

REPORT INFORMATION
  Report Type: 
  Country: None (occurrence: None)
  Receive Date: 20070706
  Receipt Date: 20070504
  Transmission Date: 20080115
  Serious: No
  Sender: FDA-Public Use
  Company Number: A0648692A

PATIENT
  Age: 46 Year
  Sex: Female

DRUGS (8)
  1. TYKERB [Suspect]
     Indication: BREAST CANCER
     Dosage: 1250MG PER DAY
     Route: 048
     Dates: start: 20070409, end: 20070429
  2. XELODA [Suspect]
  3. LOVENOX [Concomitant]
  4. XANAX [Concomitant]
  5. INDERAL [Concomitant]
  6. B6 [Concomitant]
  7. OXYCODONE HCL [Concomitant]
  8. UNKNOWN MEDICATION [Concomitant]

REACTIONS (7)
  - ANOREXIA [None]
  - ASTHENIA [None]
  - CHILLS [None]
  - DECREASED APPETITE [None]
  - DIARRHOEA [None]
  - FATIGUE [None]
  - RASH [None]
